FAERS Safety Report 5026637-7 (Version None)
Quarter: 2006Q2

REPORT INFORMATION
  Report Type: 
  Country: None (occurrence: None)
  Receive Date: 20060615
  Receipt Date: 20060328
  Transmission Date: 20061013
  Serious: Yes (Disabling)
  Sender: FDA-Public Use
  Company Number: US-GLAXOSMITHKLINE-A0599381A

PATIENT
  Age: 36 Year
  Sex: Female
  Weight: 63.6 kg

DRUGS (1)
  1. PAXIL [Suspect]
     Dosage: 10MG PER DAY
     Route: 048
     Dates: start: 20060325, end: 20060326

REACTIONS (6)
  - BLOOD POTASSIUM DECREASED [None]
  - DIZZINESS [None]
  - DRY MOUTH [None]
  - HANGOVER [None]
  - HEADACHE [None]
  - HOT FLUSH [None]
